FAERS Safety Report 14971812 (Version 1)
Quarter: 2018Q2

REPORT INFORMATION
  Report Type: Spontaneous
  Country: FR (occurrence: FR)
  Receive Date: 20180605
  Receipt Date: 20180605
  Transmission Date: 20180711
  Serious: Yes (Hospitalization)
  Sender: FDA-Public Use
  Company Number: FR-TEVA-2018-FR-901611

PATIENT
  Age: 35 Year
  Sex: Male
  Weight: 98 kg

DRUGS (7)
  1. KETOPROFEN. [Suspect]
     Active Substance: KETOPROFEN
     Indication: PAIN
     Route: 048
     Dates: start: 20180213, end: 20180214
  2. PARACETAMOL [Concomitant]
     Active Substance: ACETAMINOPHEN
     Indication: OROPHARYNGEAL PAIN
     Dosage: 3 GRAM DAILY;
     Route: 048
     Dates: start: 20180206, end: 20180211
  3. DIAZEPAM. [Suspect]
     Active Substance: DIAZEPAM
     Indication: PAIN
     Dosage: 2 MILLIGRAM DAILY;
     Route: 048
     Dates: start: 20180213, end: 20180214
  4. BECOTIDE [Concomitant]
     Active Substance: BECLOMETHASONE DIPROPIONATE
     Indication: COUGH
     Route: 055
     Dates: start: 20180206, end: 20180211
  5. CODOLIPRANE ADULTES, COMPRIM? S?CABLE [Suspect]
     Active Substance: ACETAMINOPHEN\CODEINE PHOSPHATE
     Indication: PAIN
     Dosage: 4 DOSAGE FORMS DAILY;
     Route: 048
     Dates: start: 20180213, end: 20180214
  6. TUSSIDANE [Concomitant]
     Active Substance: DEXTROMETHORPHAN HYDROBROMIDE
     Indication: COUGH
     Route: 048
     Dates: start: 20180206, end: 20180211
  7. IBUPROFEN. [Suspect]
     Active Substance: IBUPROFEN
     Indication: OROPHARYNGEAL PAIN
     Dosage: 1200 MILLIGRAM DAILY;
     Route: 048
     Dates: start: 20180206, end: 20180211

REACTIONS (1)
  - Staphylococcal sepsis [Recovered/Resolved]

NARRATIVE: CASE EVENT DATE: 20180214
